FAERS Safety Report 25953756 (Version 1)
Quarter: 2025Q4

REPORT INFORMATION
  Report Type: Spontaneous
  Country: US (occurrence: None)
  Receive Date: 20251023
  Receipt Date: 20251023
  Transmission Date: 20260117
  Serious: Yes (Hospitalization)
  Sender: FDA-CTU
  Company Number: None

PATIENT
  Sex: Female

DRUGS (1)
  1. HYRIMOZ [Suspect]
     Active Substance: ADALIMUMAB-ADAZ
     Indication: Inflammatory bowel disease
     Dosage: 40 MG/ML EVERY 7 DAYS SUBCUTANEOUSS?
     Route: 058

REACTIONS (1)
  - Obstruction [None]
